FAERS Safety Report 7595502-3 (Version None)
Quarter: 2011Q3

REPORT INFORMATION
  Report Type: 
  Country: None (occurrence: None)
  Receive Date: 20110707
  Receipt Date: 20110629
  Transmission Date: 20111222
  Serious: Yes (Death, Hospitalization, Other)
  Sender: FDA-Public Use
  Company Number: US-BAXTER-2011BH020157

PATIENT
  Age: 71 Year
  Sex: Female

DRUGS (3)
  1. DIANEAL [Suspect]
     Indication: PERITONEAL DIALYSIS
     Route: 033
     Dates: end: 20110620
  2. DIANEAL [Suspect]
     Indication: PERITONEAL DIALYSIS
     Route: 033
     Dates: end: 20110620
  3. DIANEAL [Suspect]
     Indication: PERITONEAL DIALYSIS
     Route: 033
     Dates: end: 20110620

REACTIONS (6)
  - ASTHENIA [None]
  - CHOKING [None]
  - RENAL FAILURE [None]
  - SEPSIS [None]
  - DIABETES MELLITUS [None]
  - PNEUMONIA [None]
